FAERS Safety Report 6399228-3 (Version None)
Quarter: 2009Q4

REPORT INFORMATION
  Report Type: 
  Country: None (occurrence: None)
  Receive Date: 20091014
  Receipt Date: 20071217
  Transmission Date: 20100525
  Serious: Yes (Other)
  Sender: FDA-Public Use
  Company Number: US-ASTRAZENECA-2007UW21680

PATIENT
  Age: 567 Month
  Sex: Female
  Weight: 97.1 kg

DRUGS (14)
  1. SEROQUEL [Suspect]
     Indication: DEPRESSION
     Dosage: 100 MG TO 250 MG
     Route: 048
     Dates: start: 20040101, end: 20061001
  2. SEROQUEL [Suspect]
     Indication: INSOMNIA
     Dosage: 100 MG TO 250 MG
     Route: 048
     Dates: start: 20040101, end: 20061001
  3. SEROQUEL [Suspect]
     Dosage: 25 MG - 200 MG AT NIGHT
     Route: 048
     Dates: start: 20050121
  4. SEROQUEL [Suspect]
     Dosage: 25 MG - 200 MG AT NIGHT
     Route: 048
     Dates: start: 20050121
  5. THEOPHYLLINE-SR [Concomitant]
     Dates: start: 20050118
  6. TRICOR [Concomitant]
     Dates: start: 20050118
  7. LIPITOR [Concomitant]
     Dates: start: 20050118
  8. ISOSORBIDE MN [Concomitant]
     Dates: start: 20050121
  9. FLUOXETINE [Concomitant]
     Dates: start: 20050121
  10. ABILIFY [Concomitant]
     Dates: start: 20050121
  11. ZETIA [Concomitant]
     Dates: start: 20050127
  12. NADOLOL [Concomitant]
     Dates: start: 20050217
  13. TRAZODONE [Concomitant]
     Dates: start: 20050217
  14. WELLBUTRIN XL [Concomitant]
     Dates: start: 20050311

REACTIONS (3)
  - DIABETES MELLITUS [None]
  - DIABETIC NEUROPATHY [None]
  - HYPOGLYCAEMIA [None]
